FAERS Safety Report 20991835 (Version 2)
Quarter: 2022Q3

REPORT INFORMATION
  Report Type: Spontaneous
  Country: ES (occurrence: ES)
  Receive Date: 20220622
  Receipt Date: 20220721
  Transmission Date: 20221026
  Serious: Yes (Hospitalization)
  Sender: FDA-Public Use
  Company Number: None

PATIENT
  Age: 9 Year
  Sex: Female

DRUGS (11)
  1. GANCICLOVIR [Suspect]
     Active Substance: GANCICLOVIR
     Route: 042
     Dates: start: 20210901, end: 20210923
  2. MYCOPHENOLATE MOFETIL [Suspect]
     Active Substance: MYCOPHENOLATE MOFETIL
     Route: 042
     Dates: start: 20210905, end: 20210923
  3. PIPERACILLIN SODIUM\TAZOBACTAM SODIUM [Suspect]
     Active Substance: PIPERACILLIN SODIUM\TAZOBACTAM SODIUM
     Dosage: EVERY 6 HOUR
     Route: 042
     Dates: start: 20210823, end: 20210915
  4. TEICOPLANIN [Suspect]
     Active Substance: TEICOPLANIN
     Route: 042
     Dates: start: 20210909, end: 20210913
  5. CLONIDINE [Suspect]
     Active Substance: CLONIDINE
  6. GABAPENTIN [Suspect]
     Active Substance: GABAPENTIN
  7. COTRIMOXAZOLE [Concomitant]
     Active Substance: SULFAMETHOXAZOLE\TRIMETHOPRIM
     Dosage: EVERY 7 DAY
     Route: 042
     Dates: start: 20210908
  8. OMEPRAZOLE [Concomitant]
     Active Substance: OMEPRAZOLE
     Dosage: EVERY 12 HOUR
     Route: 042
     Dates: start: 20210708
  9. SPIRONOLACTONE [Concomitant]
     Active Substance: SPIRONOLACTONE
     Route: 048
     Dates: start: 20210820, end: 20210904
  10. TACROLIMUS [Concomitant]
     Active Substance: TACROLIMUS
  11. URSODIOL [Concomitant]
     Active Substance: URSODIOL

REACTIONS (1)
  - Hepatitis cholestatic [Not Recovered/Not Resolved]

NARRATIVE: CASE EVENT DATE: 20210913
